FAERS Safety Report 18445205 (Version 1)
Quarter: 2020Q4

REPORT INFORMATION
  Report Type: Spontaneous
  Country: JP (occurrence: JP)
  Receive Date: 20201030
  Receipt Date: 20201030
  Transmission Date: 20210114
  Serious: Yes (Hospitalization, Other)
  Sender: FDA-Public Use
  Company Number: JP-GLAXOSMITHKLINE-JP2020JPN213160

PATIENT
  Sex: Male

DRUGS (1)
  1. ACTIVIR [Suspect]
     Active Substance: ACYCLOVIR
     Dosage: UNK
     Route: 065

REACTIONS (5)
  - Anaphylactic shock [Unknown]
  - HIV infection [Unknown]
  - Herpes zoster [Unknown]
  - Meningitis herpes [Unknown]
  - Headache [Recovering/Resolving]
